FAERS Safety Report 6626886-8 (Version None)
Quarter: 2010Q1

REPORT INFORMATION
  Report Type: 
  Country: None (occurrence: None)
  Receive Date: 20100311
  Receipt Date: 20100225
  Transmission Date: 20100710
  Serious: Yes (Hospitalization)
  Sender: FDA-Public Use
  Company Number: FR-RANBAXY-2010RR-32167

PATIENT
  Age: 73 Year
  Sex: Female

DRUGS (11)
  1. AMIODARONE HCL [Suspect]
     Dosage: 200 MG, UNK
  2. BROMAZEPAM [Suspect]
     Dosage: UNK
  3. ZOLPIDEM [Suspect]
     Dosage: 10 MG, UNK
  4. ESOMEPRAZOLE [Suspect]
     Dosage: 20 MG, UNK
  5. FLUINDIONE [Concomitant]
  6. DIPYRAMIDOLE [Concomitant]
  7. RAMIPRIL [Concomitant]
  8. AMLODIPINE [Concomitant]
  9. ATORVASTATIN CALCIUM [Concomitant]
  10. GLICLAZIDE [Concomitant]
  11. BETAHISTINE [Concomitant]

REACTIONS (3)
  - COMA [None]
  - DRUG INTERACTION [None]
  - OVERDOSE [None]
